FAERS Safety Report 11400498 (Version 1)
Quarter: 2015Q3

REPORT INFORMATION
  Report Type: Spontaneous
  Country: US (occurrence: US)
  Receive Date: 20150820
  Receipt Date: 20150820
  Transmission Date: 20151125
  Serious: No
  Sender: FDA-Public Use
  Company Number: US-PFIZER INC-2015274468

PATIENT
  Sex: Male

DRUGS (2)
  1. DIFLUCAN [Suspect]
     Active Substance: FLUCONAZOLE
     Indication: INFECTION
     Dosage: UNK
  2. FLUCONAZOLE. [Suspect]
     Active Substance: FLUCONAZOLE
     Dosage: 200 MG, DAILY (200 MG FOR 2 DAYS,THEN SKIP FOR WEEK,THEN 200MG DAILY FOR ADDITIONAL 2 DAYS)

REACTIONS (3)
  - Off label use [Unknown]
  - Disease recurrence [Unknown]
  - Candida infection [Unknown]
